FAERS Safety Report 12094724 (Version 5)
Quarter: 2018Q2

REPORT INFORMATION
  Report Type: Spontaneous
  Country: US (occurrence: US)
  Receive Date: 20160219
  Receipt Date: 20180409
  Transmission Date: 20180711
  Serious: Yes (Death, Hospitalization)
  Sender: FDA-Public Use
  Company Number: US-JNJFOC-20160217465

PATIENT
  Age: 80 Year
  Sex: Female

DRUGS (3)
  1. ASPIRIN. [Suspect]
     Active Substance: ASPIRIN
     Indication: PRODUCT USED FOR UNKNOWN INDICATION
     Dosage: TREATMENT WITH RIVAROXABAN FROM ON AUG-2015 TILL SEP-2015. 10MG-20 MG
     Route: 048
     Dates: end: 20150903
  2. XARELTO [Suspect]
     Active Substance: RIVAROXABAN
     Indication: ANTICOAGULANT THERAPY
     Dosage: TREATMENT WITH RIVAROXABAN FROM ON AUG-2015 TILL SEP-2015. 10MG-20 MG
     Route: 048
     Dates: start: 20150820, end: 20150903
  3. XARELTO [Suspect]
     Active Substance: RIVAROXABAN
     Indication: DEEP VEIN THROMBOSIS
     Dosage: TREATMENT WITH RIVAROXABAN FROM ON AUG-2015 TILL SEP-2015. 10MG-20 MG
     Route: 048
     Dates: start: 20150820, end: 20150903

REACTIONS (3)
  - Gastrointestinal haemorrhage [Recovering/Resolving]
  - Acute kidney injury [Recovering/Resolving]
  - Haemothorax [Recovering/Resolving]

NARRATIVE: CASE EVENT DATE: 20150903
